FAERS Safety Report 9885350 (Version 3)
Quarter: 2014Q1

REPORT INFORMATION
  Report Type: Spontaneous
  Country: US (occurrence: US)
  Receive Date: 20140210
  Receipt Date: 20140310
  Transmission Date: 20141002
  Serious: Yes (Other)
  Sender: FDA-Public Use
  Company Number: US-PFIZER INC-2014035609

PATIENT
  Age: 41 Year
  Sex: Male
  Weight: 88.44 kg

DRUGS (4)
  1. CELEBREX [Suspect]
     Indication: PAIN
     Dosage: UNK
  2. CELEBREX [Suspect]
     Indication: INFLAMMATION
  3. LYRICA [Suspect]
     Indication: NEURALGIA
     Dosage: 100 MG, 3X/DAY
     Dates: start: 2012
  4. VIAGRA [Concomitant]
     Dosage: UNK

REACTIONS (12)
  - Drug hypersensitivity [Unknown]
  - Pharyngeal oedema [Unknown]
  - Hypoaesthesia [Unknown]
  - Headache [Unknown]
  - Tongue eruption [Unknown]
  - Rash [Unknown]
  - Paraesthesia [Unknown]
  - Feeling abnormal [Unknown]
  - Movement disorder [Unknown]
  - Fatigue [Unknown]
  - Throat tightness [Unknown]
  - Acne [Unknown]
